FAERS Safety Report 5022791-1 (Version None)
Quarter: 2006Q2

REPORT INFORMATION
  Report Type: 
  Country: None (occurrence: None)
  Receive Date: 20060426
  Receipt Date: 20060218
  Transmission Date: 20061013
  Serious: Yes (Other)
  Sender: FDA-Public Use
  Company Number: 2005155904

PATIENT
  Sex: Female

DRUGS (2)
  1. LYRICA [Suspect]
     Indication: PAIN IN EXTREMITY
     Dates: start: 20050101
  2. LYRICA [Suspect]
     Indication: RESTLESS LEGS SYNDROME
     Dates: start: 20050101

REACTIONS (1)
  - SUICIDAL IDEATION [None]
